FAERS Safety Report 25478987 (Version 1)
Quarter: 2025Q2

REPORT INFORMATION
  Report Type: Other
  Country: US (occurrence: US)
  Receive Date: 20250625
  Receipt Date: 20250625
  Transmission Date: 20250717
  Serious: Yes (Death, Life-Threatening, Hospitalization, Disabling, Other)
  Sender: LGM PHARMA SOLUTIONS, LLC
  Company Number: US-LGM Pharma Solutions, LLC-2179359

PATIENT
  Age: 21 Year
  Sex: Male

DRUGS (4)
  1. ACETAMINOPHEN [Suspect]
     Active Substance: ACETAMINOPHEN
     Indication: Product used for unknown indication
  2. BUPROPION [Concomitant]
     Active Substance: BUPROPION
  3. FLUOXETINE [Concomitant]
     Active Substance: FLUOXETINE HYDROCHLORIDE
  4. OLANZAPINE [Concomitant]
     Active Substance: OLANZAPINE

REACTIONS (7)
  - Intentional overdose [Fatal]
  - Loss of consciousness [Unknown]
  - Vomiting [Unknown]
  - Generalised tonic-clonic seizure [Recovered/Resolved]
  - Acidosis [Fatal]
  - Methaemoglobinaemia [Fatal]
  - Multiple organ dysfunction syndrome [Fatal]
